FAERS Safety Report 20080815 (Version 1)
Quarter: 2021Q4

REPORT INFORMATION
  Report Type: Spontaneous
  Country: IT (occurrence: IT)
  Receive Date: 20211117
  Receipt Date: 20211117
  Transmission Date: 20220304
  Serious: Yes (Hospitalization, Other)
  Sender: FDA-Public Use
  Company Number: IT-SA-2021SA277065

PATIENT
  Age: 50 Year
  Sex: Male

DRUGS (24)
  1. OLMESARTAN MEDOXOMIL [Suspect]
     Active Substance: OLMESARTAN MEDOXOMIL
     Indication: Product used for unknown indication
     Dosage: UNK
  2. PREDNISOLONE [Concomitant]
     Active Substance: PREDNISOLONE
     Dosage: 2.5 MG, QOD
  3. PREDNISOLONE [Concomitant]
     Active Substance: PREDNISOLONE
     Dosage: 10 MG, QD
  4. MIDAZOLAM [Concomitant]
     Active Substance: MIDAZOLAM
     Indication: Anxiolytic therapy
     Dosage: 9.5 MG, QD
     Route: 040
  5. MIDAZOLAM [Concomitant]
     Active Substance: MIDAZOLAM
     Indication: Anxiety
     Dosage: UNK
     Route: 041
  6. MIDAZOLAM [Concomitant]
     Active Substance: MIDAZOLAM
     Indication: Agitation
  7. CHLORPHENIRAMINE                   /00072501/ [Concomitant]
     Indication: Anxiolytic therapy
     Dosage: UNK
  8. HYDROXYCHLOROQUINE [Concomitant]
     Active Substance: HYDROXYCHLOROQUINE
     Indication: COVID-19
     Dosage: RENAL ADJUSTED DOSE
  9. MEROPENEM [Concomitant]
     Active Substance: MEROPENEM
     Indication: COVID-19
     Dosage: UNK, RENAL ADJUSTED DOSE
  10. LYSINE ACETYLSALICYLATE [Concomitant]
     Active Substance: ASPIRIN DL-LYSINE
     Indication: Pyrexia
     Dosage: UNK
  11. MORPHINE [Concomitant]
     Active Substance: MORPHINE
     Indication: Agitation
     Dosage: UNK, DOWNGRADED
     Route: 041
  12. MORPHINE [Concomitant]
     Active Substance: MORPHINE
     Indication: Anxiolytic therapy
     Dosage: 12 MG, QD
     Route: 040
  13. MORPHINE [Concomitant]
     Active Substance: MORPHINE
     Indication: Anxiety
     Dosage: LOW DOSE
     Route: 058
  14. BROMAZEPAM [Concomitant]
     Active Substance: BROMAZEPAM
     Indication: Sedation
     Dosage: UNK LOW DOSE
  15. HALOPERIDOL [Concomitant]
     Active Substance: HALOPERIDOL
     Indication: Anxiolytic therapy
     Dosage: UNK, LOW DOSE AT NIGHT
     Route: 058
  16. HEPARIN CALCIUM [Concomitant]
     Active Substance: HEPARIN CALCIUM
     Indication: Anticoagulant therapy
     Dosage: 5.000 IU, BID
  17. HEPARIN CALCIUM [Concomitant]
     Active Substance: HEPARIN CALCIUM
     Dosage: 5 IU, TID
  18. TOCILIZUMAB [Concomitant]
     Active Substance: TOCILIZUMAB
     Dosage: 400 MILLIGRAM
  19. OXYGEN [Concomitant]
     Active Substance: OXYGEN
     Indication: Oxygen therapy
     Dosage: UNK, LOW FLOW
  20. HYDROCORTISONE [Concomitant]
     Active Substance: HYDROCORTISONE
     Dosage: UNK
     Route: 040
  21. METHYLPREDNISOLONE [Concomitant]
     Active Substance: METHYLPREDNISOLONE
     Dosage: 20 MILLIGRAM, QD
     Route: 042
  22. METHYLPREDNISOLONE [Concomitant]
     Active Substance: METHYLPREDNISOLONE
     Dosage: 40 MILLIGRAM, QD
     Route: 042
  23. LINEZOLID [Concomitant]
     Active Substance: LINEZOLID
     Indication: COVID-19
     Dosage: UNK, RENAL ADJUSTED DOSE
  24. ACETAMINOPHEN [Concomitant]
     Active Substance: ACETAMINOPHEN
     Indication: Pyrexia
     Dosage: UNK

REACTIONS (3)
  - Rash [Recovered/Resolved]
  - Diarrhoea [Recovered/Resolved]
  - Drug hypersensitivity [Recovered/Resolved]
